FAERS Safety Report 16354140 (Version 2)
Quarter: 2019Q2

REPORT INFORMATION
  Report Type: Spontaneous
  Country: US (occurrence: US)
  Receive Date: 20190524
  Receipt Date: 20190531
  Transmission Date: 20190711
  Serious: No
  Sender: FDA-Public Use
  Company Number: US-LUNDBECK-DKLU2076491

PATIENT
  Sex: Male
  Weight: 82 kg

DRUGS (3)
  1. NORTHERA [Suspect]
     Active Substance: DROXIDOPA
     Indication: PARKINSON^S DISEASE
     Route: 048
     Dates: start: 20190411
  2. NORTHERA [Suspect]
     Active Substance: DROXIDOPA
     Indication: HALLUCINATION
     Route: 048
     Dates: start: 20190214
  3. NORTHERA [Suspect]
     Active Substance: DROXIDOPA
     Indication: ORTHOSTATIC HYPOTENSION
     Route: 048
     Dates: start: 20190315

REACTIONS (1)
  - Chest pain [Recovered/Resolved]
